FAERS Safety Report 14076317 (Version 3)
Quarter: 2017Q4

REPORT INFORMATION
  Report Type: Spontaneous
  Country: JP (occurrence: JP)
  Receive Date: 20171011
  Receipt Date: 20171227
  Transmission Date: 20180321
  Serious: Yes (Life-Threatening, Other)
  Sender: FDA-Public Use
  Company Number: JP-BRACCO-2017JP04431

PATIENT
  Age: 5 Year
  Sex: Female

DRUGS (6)
  1. IOPAMIRON [Suspect]
     Active Substance: IOPAMIDOL
     Indication: AORTOGRAM
     Dosage: 6 ML, SINGLE
     Route: 040
     Dates: start: 20170925, end: 20170925
  2. HEPARIN [Suspect]
     Active Substance: HEPARIN SODIUM
  3. WARFARIN [Suspect]
     Active Substance: WARFARIN
     Indication: THROMBOSIS PROPHYLAXIS
     Dosage: 0.3 MG, QD
     Dates: start: 20130829, end: 20170925
  4. ARTIST [Concomitant]
     Active Substance: CARVEDILOL
     Dosage: UNK
     Dates: start: 20130829, end: 20170925
  5. ACETYLSALICYLIC ACID [Suspect]
     Active Substance: ASPIRIN
     Indication: THROMBOSIS PROPHYLAXIS
     Dosage: 30 MG, QD
     Dates: start: 20130829, end: 20170925
  6. ENALART [Concomitant]
     Active Substance: ENALAPRIL MALEATE
     Indication: CARDIAC FAILURE
     Dosage: UNK
     Dates: start: 20130829, end: 20170925

REACTIONS (3)
  - Subarachnoid haemorrhage [Not Recovered/Not Resolved]
  - Delayed recovery from anaesthesia [Unknown]
  - Extravasation [Unknown]

NARRATIVE: CASE EVENT DATE: 20170925
